FAERS Safety Report 7528516-X (Version None)
Quarter: 2011Q2

REPORT INFORMATION
  Report Type: 
  Country: None (occurrence: None)
  Receive Date: 20110607
  Receipt Date: 20110121
  Transmission Date: 20111010
  Serious: No
  Sender: FDA-Public Use
  Company Number: US-ASTRAZENECA-2011SE05639

PATIENT
  Age: 57 Year
  Sex: Male

DRUGS (6)
  1. PRILOSEC OTC [Suspect]
     Route: 048
     Dates: start: 20090101
  2. VYTORIN [Concomitant]
     Dosage: UNKNOWN
  3. GABAPENTIN [Concomitant]
     Dosage: UNKNOWN
  4. VICODIN [Concomitant]
     Dosage: UNKNOWN
  5. SCALATEN [Concomitant]
     Dosage: UNKNOWN
  6. FLEXALL [Concomitant]
     Dosage: UNKNOWN

REACTIONS (3)
  - INCORRECT DRUG ADMINISTRATION DURATION [None]
  - INCORRECT DOSE ADMINISTERED [None]
  - BLOOD PRESSURE INCREASED [None]
